FAERS Safety Report 5055977-0 (Version None)
Quarter: 2006Q3

REPORT INFORMATION
  Report Type: 
  Country: None (occurrence: None)
  Receive Date: 20060720
  Receipt Date: 20060621
  Transmission Date: 20061208
  Serious: Yes (Life-Threatening)
  Sender: FDA-Public Use
  Company Number: PHEH2006US08099

PATIENT
  Age: 46 Year
  Sex: Female
  Weight: 97.505 kg

DRUGS (3)
  1. ENABLEX [Suspect]
     Indication: URINARY INCONTINENCE
     Dosage: 7.5 MG, QD
     Route: 048
     Dates: start: 20060510, end: 20060517
  2. LAMICTAL [Concomitant]
  3. PREMARIN [Concomitant]

REACTIONS (5)
  - CHEST DISCOMFORT [None]
  - PHARYNGOLARYNGEAL PAIN [None]
  - PRURITUS [None]
  - SWOLLEN TONGUE [None]
  - THROAT TIGHTNESS [None]
